FAERS Safety Report 4777315-0 (Version None)
Quarter: 2005Q3

REPORT INFORMATION
  Report Type: 
  Country: None (occurrence: None)
  Receive Date: 20050915
  Receipt Date: 20050829
  Transmission Date: 20060218
  Serious: Yes (Other)
  Sender: FDA-Public Use
  Company Number: USA041082077

PATIENT
  Age: 77 Year
  Sex: Female

DRUGS (8)
  1. EVISTA [Suspect]
     Indication: OSTEOPOROSIS
     Dates: start: 20020101
  2. FORTEO [Suspect]
  3. PREMARIN [Concomitant]
  4. LORAZEPAM [Concomitant]
  5. CELEBREX [Concomitant]
  6. VITAMIN D [Concomitant]
  7. CALTRATE (CALCIUM CARBONATE) [Concomitant]
  8. SYNTHROID [Concomitant]

REACTIONS (13)
  - ABDOMINAL PAIN [None]
  - BONE DISORDER [None]
  - DERMATITIS ALLERGIC [None]
  - DISCOMFORT [None]
  - FEELING ABNORMAL [None]
  - FLATULENCE [None]
  - INCREASED APPETITE [None]
  - INJECTION SITE URTICARIA [None]
  - INTRACARDIAC THROMBUS [None]
  - MEDICAL DEVICE COMPLICATION [None]
  - MYOCARDIAL INFARCTION [None]
  - PHARMACEUTICAL PRODUCT COMPLAINT [None]
  - THERAPEUTIC RESPONSE UNEXPECTED [None]
